FAERS Safety Report 7323325-9 (Version None)
Quarter: 2011Q1

REPORT INFORMATION
  Report Type: 
  Country: None (occurrence: None)
  Receive Date: 20110301
  Receipt Date: 20110222
  Transmission Date: 20110831
  Serious: Yes (Other)
  Sender: FDA-Public Use
  Company Number: US-BRACCO-005930

PATIENT
  Age: 13 Year
  Sex: Female
  Weight: 98 kg

DRUGS (3)
  1. MULTIHANCE [Suspect]
     Indication: COLOUR BLINDNESS ACQUIRED
     Route: 042
     Dates: start: 20110221, end: 20110221
  2. MULTIHANCE [Suspect]
     Indication: OPTIC NEURITIS
     Route: 042
     Dates: start: 20110221, end: 20110221
  3. MULTIHANCE [Suspect]
     Indication: NUCLEAR MAGNETIC RESONANCE IMAGING BRAIN
     Route: 042
     Dates: start: 20110221, end: 20110221

REACTIONS (5)
  - PHARYNGEAL OEDEMA [None]
  - SWOLLEN TONGUE [None]
  - DYSPNOEA [None]
  - SWELLING FACE [None]
  - ERYTHEMA [None]
